FAERS Safety Report 22747435 (Version 4)
Quarter: 2023Q4

REPORT INFORMATION
  Report Type: Spontaneous
  Country: PL (occurrence: PL)
  Receive Date: 20230725
  Receipt Date: 20231030
  Transmission Date: 20240109
  Serious: Yes (Death, Life-Threatening, Hospitalization, Other)
  Sender: FDA-Public Use
  Company Number: PL-JNJFOC-20230738722

PATIENT
  Age: 64 Year
  Sex: Female

DRUGS (15)
  1. ACETAMINOPHEN [Interacting]
     Active Substance: ACETAMINOPHEN
     Indication: Arthralgia
     Dosage: (COMBINATION OF PARACETAMOL WITH DIPHENHYDRAMINE BEFORE NIGH
     Route: 065
  2. ACETAMINOPHEN [Interacting]
     Active Substance: ACETAMINOPHEN
     Indication: Osteoarthritis
     Dosage: 1000 MG, BID (1000 MG, 2 X 24 H IN THE DAYTIME)
     Route: 065
  3. WARFARIN SODIUM [Interacting]
     Active Substance: WARFARIN SODIUM
     Indication: Osteoarthritis
     Dosage: VARIABLE DOSES ADJUSTED TO THE INR VALUE
     Route: 065
  4. WARFARIN SODIUM [Interacting]
     Active Substance: WARFARIN SODIUM
     Indication: Abdominal pain upper
  5. WARFARIN SODIUM [Interacting]
     Active Substance: WARFARIN SODIUM
     Indication: Anticoagulant therapy
  6. WARFARIN SODIUM [Interacting]
     Active Substance: WARFARIN SODIUM
     Indication: Atrial fibrillation
  7. OMEPRAZOLE [Interacting]
     Active Substance: OMEPRAZOLE
     Indication: Abdominal pain upper
     Dosage: 40 MG, QD
     Route: 065
  8. ACETAMINOPHEN\DIPHENHYDRAMINE [Interacting]
     Active Substance: ACETAMINOPHEN\DIPHENHYDRAMINE
     Indication: Arthralgia
     Dosage: DURING THE NIGHT IN COMBINATION WITH PARACETAMOL./1 DOSAGE FORM, QD, AT NIGHT/UNK UNK, PRN
     Route: 065
  9. DIPHENHYDRAMINE [Suspect]
     Active Substance: DIPHENHYDRAMINE
     Indication: Osteoarthritis
     Dosage: UNK (COMBINATION OF PARACETAMOL WITH DIPHENHYDRAMINE BEFORE NIGHT)
     Route: 065
  10. METOPROLOL [Suspect]
     Active Substance: METOPROLOL
     Indication: Osteoarthritis
     Dosage: 1 X 50 MG/50 MG, QD
     Route: 065
  11. METOPROLOL [Suspect]
     Active Substance: METOPROLOL
     Indication: Atrial fibrillation
  12. PROPAFENONE HYDROCHLORIDE [Suspect]
     Active Substance: PROPAFENONE HYDROCHLORIDE
     Indication: Atrial fibrillation
     Dosage: 2 X 150 MG/150 MG, BID/150 MG, QOD
     Route: 065
  13. PROPAFENONE HYDROCHLORIDE [Suspect]
     Active Substance: PROPAFENONE HYDROCHLORIDE
     Indication: Osteoarthritis
     Dosage: 150 MG, BID (300 MG
     Route: 065
  14. CHONDROITIN [Concomitant]
     Active Substance: CHONDROITIN
     Indication: Supplementation therapy
     Route: 065
  15. CHONDROITIN SULFATE (BOVINE) [Concomitant]
     Active Substance: CHONDROITIN SULFATE (BOVINE)
     Indication: Supplementation therapy
     Route: 065

REACTIONS (8)
  - Subarachnoid haemorrhage [Fatal]
  - Coagulation time prolonged [Fatal]
  - Drug interaction [Fatal]
  - Loss of consciousness [Recovered/Resolved]
  - Abdominal pain upper [Fatal]
  - Coagulation time prolonged [Fatal]
  - Arthralgia [Unknown]
  - International normalised ratio abnormal [Unknown]
